FAERS Safety Report 23191670 (Version 1)
Quarter: 2023Q4

REPORT INFORMATION
  Report Type: Spontaneous
  Country: US (occurrence: US)
  Receive Date: 20231116
  Receipt Date: 20231116
  Transmission Date: 20240110
  Serious: No
  Sender: FDA-Public Use
  Company Number: US-BEH-2022151036

PATIENT
  Age: 57 Year
  Sex: Female

DRUGS (1)
  1. HIZENTRA [Suspect]
     Active Substance: HUMAN IMMUNOGLOBULIN G
     Indication: Primary immunodeficiency syndrome
     Dosage: UNK, BIW
     Route: 058

REACTIONS (4)
  - Ear infection [Recovering/Resolving]
  - Blood immunoglobulin G decreased [Unknown]
  - No adverse event [Unknown]
  - Incorrect product administration duration [Unknown]
